FAERS Safety Report 5079088-3 (Version None)
Quarter: 2006Q3

REPORT INFORMATION
  Report Type: 
  Country: None (occurrence: None)
  Receive Date: 20060808
  Receipt Date: 20060727
  Transmission Date: 20061208
  Serious: Yes (Disabling)
  Sender: FDA-Public Use
  Company Number: GXKR2006GB04364

PATIENT
  Age: 60 Year
  Sex: 0

DRUGS (2)
  1. MIRTAZAPINE [Suspect]
     Indication: DEPRESSION
     Dosage: 45 MG, ORAL
     Route: 048
     Dates: start: 20051201, end: 20060601
  2. DIAZEPAM [Concomitant]

REACTIONS (1)
  - TARDIVE DYSKINESIA [None]
